FAERS Safety Report 10028879 (Version 1)
Quarter: 2014Q1

REPORT INFORMATION
  Report Type: Spontaneous
  Country: US (occurrence: US)
  Receive Date: 20140321
  Receipt Date: 20140321
  Transmission Date: 20141002
  Serious: Yes (Other)
  Sender: FDA-Public Use
  Company Number: US-MYLANLABS-2014S1005519

PATIENT
  Age: 44 Year
  Sex: Male

DRUGS (3)
  1. BUPROPION [Suspect]
     Indication: DRUG ABUSE
     Dosage: CRUSHING AND SNORTING UP TO 7 TABLETS OF 300MG DAILY (TOTAL 2100 MG/DAY)
     Route: 045
  2. BUPROPION [Suspect]
     Indication: OFF LABEL USE
     Dosage: CRUSHING AND SNORTING UP TO 7 TABLETS OF 300MG DAILY (TOTAL 2100 MG/DAY)
     Route: 045
  3. BUPRENORPHINE W/NALOXONE [Concomitant]
     Indication: DRUG DEPENDENCE
     Route: 065

REACTIONS (6)
  - Drug abuse [Recovered/Resolved]
  - Epistaxis [Recovered/Resolved]
  - Decreased appetite [Recovered/Resolved]
  - Hypoaesthesia [Recovered/Resolved]
  - Malaise [Recovered/Resolved]
  - Paranoia [Recovered/Resolved]
